FAERS Safety Report 8971616 (Version 1)
Quarter: 2012Q4

REPORT INFORMATION
  Report Type: 
  Country: CA (occurrence: CA)
  Receive Date: 20121217
  Receipt Date: 20121217
  Transmission Date: 20130627
  Serious: Yes (Hospitalization)
  Sender: FDA-Public Use
  Company Number: CA-B.I. PHARMACEUTICALS,INC./RIDGEFIELD-2012-CN-02577CN

PATIENT
  Age: 83 Year
  Sex: Female
  Weight: 53 kg

DRUGS (5)
  1. PRADAX [Suspect]
     Dosage: 220 mg
     Route: 048
  2. LAX-A-DAY [Concomitant]
  3. METOPROLOL [Concomitant]
  4. PREMARIN [Concomitant]
  5. SPIRIVA [Concomitant]

REACTIONS (6)
  - Activated partial thromboplastin time prolonged [Not Recovered/Not Resolved]
  - Alanine aminotransferase increased [Not Recovered/Not Resolved]
  - Atrial fibrillation [Not Recovered/Not Resolved]
  - Blood creatinine increased [Not Recovered/Not Resolved]
  - Dyspnoea [Not Recovered/Not Resolved]
  - Failure to thrive [Not Recovered/Not Resolved]
